FAERS Safety Report 14602577 (Version 1)
Quarter: 2018Q1

REPORT INFORMATION
  Report Type: Spontaneous
  Country: US (occurrence: US)
  Receive Date: 20180306
  Receipt Date: 20180306
  Transmission Date: 20180509
  Serious: No
  Sender: FDA-Public Use
  Company Number: US-LEO PHARMA-307556

PATIENT
  Age: 68 Year
  Sex: Female
  Weight: 86.17 kg

DRUGS (5)
  1. PROTOPIC [Suspect]
     Active Substance: TACROLIMUS
     Indication: LICHEN SCLEROSUS
  2. LORATADINE. [Concomitant]
     Active Substance: LORATADINE
     Indication: PRODUCT USED FOR UNKNOWN INDICATION
  3. THYROID THERAPY [Concomitant]
     Active Substance: UNSPECIFIED INGREDIENT
     Indication: THYROID DISORDER
  4. PROTOPIC [Suspect]
     Active Substance: TACROLIMUS
     Indication: VULVOVAGINAL PRURITUS
     Dosage: 1 APPLICATION, SINGLE
     Route: 061
     Dates: start: 20180217, end: 20180217
  5. CODEINE [Concomitant]
     Active Substance: CODEINE
     Indication: PRODUCT USED FOR UNKNOWN INDICATION
     Dates: start: 201802

REACTIONS (4)
  - Condition aggravated [Unknown]
  - Product use in unapproved indication [Unknown]
  - Vulvovaginal pain [Recovering/Resolving]
  - Vulvovaginal burning sensation [Recovered/Resolved]

NARRATIVE: CASE EVENT DATE: 201802
